FAERS Safety Report 21311988 (Version 3)
Quarter: 2022Q4

REPORT INFORMATION
  Report Type: Spontaneous
  Country: US (occurrence: US)
  Receive Date: 20220909
  Receipt Date: 20221128
  Transmission Date: 20230113
  Serious: No
  Sender: FDA-Public Use
  Company Number: US-PFIZER INC-202201139434

PATIENT
  Age: 85 Year
  Sex: Female
  Weight: 72.57 kg

DRUGS (1)
  1. PAXLOVID [Suspect]
     Active Substance: NIRMATRELVIR\RITONAVIR
     Indication: COVID-19 treatment
     Dosage: 3 DF, 2X/DAY, (THREE IN THE MORNING AND THREE IN THE EVENING WITH WATER SWALLOWED THE PILLS)
     Dates: start: 202208, end: 202208

REACTIONS (5)
  - Malaise [Unknown]
  - Feeling abnormal [Unknown]
  - Incorrect product administration duration [Unknown]
  - Incorrect dose administered [Unknown]
  - Product dispensing error [Unknown]

NARRATIVE: CASE EVENT DATE: 20220101
